FAERS Safety Report 13864516 (Version 1)
Quarter: 2017Q3

REPORT INFORMATION
  Report Type: Spontaneous
  Country: US (occurrence: None)
  Receive Date: 20170811
  Receipt Date: 20170811
  Transmission Date: 20171127
  Serious: Yes (Other)
  Sender: FDA-Public Use
  Company Number: None

PATIENT
  Age: 71 Year
  Sex: Female
  Weight: 97.43 kg

DRUGS (16)
  1. SIMVASTATIN. [Concomitant]
     Active Substance: SIMVASTATIN
  2. PROCHLORPERAZINE MALEATE. [Concomitant]
     Active Substance: PROCHLORPERAZINE MALEATE
  3. FRAGMIN [Suspect]
     Active Substance: DALTEPARIN SODIUM
     Indication: DEEP VEIN THROMBOSIS
     Dosage: FREQUENCY - QD FOR 30+/-7 DAYS
     Route: 058
     Dates: start: 20170612, end: 20170710
  4. TOPIRAMATE. [Concomitant]
     Active Substance: TOPIRAMATE
  5. SOLIFENACIN [Concomitant]
     Active Substance: SOLIFENACIN
  6. SPIRIVA [Concomitant]
     Active Substance: TIOTROPIUM BROMIDE MONOHYDRATE
  7. VASALINE [Concomitant]
  8. FRAGMIN [Suspect]
     Active Substance: DALTEPARIN SODIUM
     Indication: DEEP VEIN THROMBOSIS
     Dosage: FREQUENCY - QD - DAYS 31-180
     Route: 058
     Dates: start: 20170711, end: 20170730
  9. ATENOLOL. [Concomitant]
     Active Substance: ATENOLOL
  10. IMODIUM [Concomitant]
     Active Substance: LOPERAMIDE HYDROCHLORIDE
  11. VITAMIN D2 [Concomitant]
     Active Substance: ERGOCALCIFEROL
  12. SERTRALINE [Concomitant]
     Active Substance: SERTRALINE HYDROCHLORIDE
  13. ZOFRAN [Concomitant]
     Active Substance: ONDANSETRON HYDROCHLORIDE
  14. VITAMIN D2 [Concomitant]
     Active Substance: ERGOCALCIFEROL
  15. ALBUTEROL INHALER [Concomitant]
     Active Substance: ALBUTEROL
  16. NA CL NASAL SPRAY [Concomitant]

REACTIONS (6)
  - Chronic kidney disease [None]
  - Blood creatinine increased [None]
  - Hyponatraemia [None]
  - Therapy change [None]
  - Glomerular filtration rate decreased [None]
  - Therapy cessation [None]

NARRATIVE: CASE EVENT DATE: 20170807
